FAERS Safety Report 8336637-7 (Version None)
Quarter: 2012Q2

REPORT INFORMATION
  Report Type: 
  Country: None (occurrence: None)
  Receive Date: 20120504
  Receipt Date: 20120425
  Transmission Date: 20120825
  Serious: Yes (Other)
  Sender: FDA-Public Use
  Company Number: US-SANOFI-AVENTIS-2012SA029377

PATIENT
  Sex: Female
  Weight: 68 kg

DRUGS (4)
  1. ATENOLOL [Concomitant]
  2. PLAVIX [Suspect]
     Dates: start: 20000101
  3. PLAVIX [Suspect]
     Indication: ANGIOPLASTY
     Dates: start: 19970101
  4. TRICOR [Concomitant]

REACTIONS (2)
  - VASCULAR OCCLUSION [None]
  - VITREOUS ADHESIONS [None]
